FAERS Safety Report 16633740 (Version 1)
Quarter: 2019Q3

REPORT INFORMATION
  Report Type: Spontaneous
  Country: US (occurrence: US)
  Receive Date: 20190725
  Receipt Date: 20190725
  Transmission Date: 20191004
  Serious: No
  Sender: FDA-Public Use
  Company Number: None

PATIENT
  Age: 31 Year
  Sex: Male

DRUGS (1)
  1. ISOVUE [Suspect]
     Active Substance: IOPAMIDOL
     Dosage: ?          OTHER FREQUENCY:X 1;?
     Route: 042
     Dates: start: 20190724, end: 20190724

REACTIONS (3)
  - Urticaria [None]
  - Pruritus [None]
  - Abdominal pain [None]

NARRATIVE: CASE EVENT DATE: 20190724
